FAERS Safety Report 18405688 (Version 2)
Quarter: 2020Q4

REPORT INFORMATION
  Report Type: Spontaneous
  Country: US (occurrence: US)
  Receive Date: 20201020
  Receipt Date: 20201020
  Transmission Date: 20210114
  Serious: Yes (Hospitalization, Other)
  Sender: FDA-Public Use
  Company Number: US-B.I. PHARMACEUTICALS,INC./RIDGEFIELD-2020-BI-054496

PATIENT
  Age: 84 Year
  Sex: Female

DRUGS (1)
  1. SPIRIVA [Suspect]
     Active Substance: TIOTROPIUM BROMIDE MONOHYDRATE
     Indication: ASTHMA
     Dosage: ONE CAPSULE DAILY
     Dates: start: 2020

REACTIONS (14)
  - Weight decreased [Not Recovered/Not Resolved]
  - Hyperkalaemia [Recovered/Resolved]
  - Hypothyroidism [Recovered/Resolved]
  - Cystitis interstitial [Not Recovered/Not Resolved]
  - Ileus [Recovered/Resolved]
  - Laboratory test abnormal [Recovered/Resolved]
  - Urinary tract infection [Recovered/Resolved]
  - Off label use [Not Recovered/Not Resolved]
  - Azotaemia [Recovered/Resolved]
  - Hypertension [Recovered/Resolved]
  - Pneumonia [Recovered/Resolved]
  - Renal injury [Recovered/Resolved]
  - Urinary retention [Recovered/Resolved]
  - Asthenia [Not Recovered/Not Resolved]

NARRATIVE: CASE EVENT DATE: 2020
